FAERS Safety Report 25690113 (Version 2)
Quarter: 2025Q4

REPORT INFORMATION
  Report Type: Spontaneous
  Country: US (occurrence: US)
  Receive Date: 20250818
  Receipt Date: 20251110
  Transmission Date: 20260117
  Serious: Yes (Hospitalization, Other)
  Sender: MYLAN
  Company Number: US-MYLANLABS-2025M1069495

PATIENT
  Sex: Female
  Weight: 59 kg

DRUGS (2)
  1. ESTRADIOL TRANSDERMAL SYSTEM [Suspect]
     Active Substance: ESTRADIOL
     Indication: Hot flush
     Dosage: 0.05 MILLIGRAM, QD (PER DAY, TWICE WEEKLY)
     Dates: start: 2025
  2. ESTRADIOL TRANSDERMAL SYSTEM [Suspect]
     Active Substance: ESTRADIOL
     Dosage: 0.05 MILLIGRAM, QD (PER DAY, TWICE WEEKLY)
     Dates: start: 202507

REACTIONS (6)
  - Multiple fractures [Unknown]
  - Nervousness [Unknown]
  - Wrong technique in product usage process [Unknown]
  - Product label confusion [Unknown]
  - Product design issue [Unknown]
  - Product adhesion issue [Unknown]

NARRATIVE: CASE EVENT DATE: 20250101
